FAERS Safety Report 24408259 (Version 2)
Quarter: 2024Q4

REPORT INFORMATION
  Report Type: Spontaneous
  Country: US (occurrence: US)
  Receive Date: 20241007
  Receipt Date: 20241017
  Transmission Date: 20250115
  Serious: No
  Sender: Harrow Health
  Company Number: US-IMP-2024000716

PATIENT
  Age: 78 Year
  Sex: Female
  Weight: 65.3 kg

DRUGS (1)
  1. VEVYE [Suspect]
     Active Substance: CYCLOSPORINE
     Indication: Dry eye
     Route: 047
     Dates: start: 20240731, end: 20240829

REACTIONS (3)
  - Drug intolerance [Recovered/Resolved]
  - Dry eye [Recovered/Resolved]
  - Ocular discomfort [Recovered/Resolved]

NARRATIVE: CASE EVENT DATE: 20240731
